FAERS Safety Report 9531587 (Version 1)
Quarter: 2013Q3

REPORT INFORMATION
  Report Type: Spontaneous
  Country: US (occurrence: None)
  Receive Date: 20130917
  Receipt Date: 20130917
  Transmission Date: 20140515
  Serious: Yes (Other)
  Sender: FDA-Public Use
  Company Number: None

PATIENT
  Age: 22 Year
  Sex: Female
  Weight: 56.7 kg

DRUGS (1)
  1. ABSORICA [Suspect]
     Indication: ACNE
     Route: 048
     Dates: start: 20130715, end: 20130803

REACTIONS (1)
  - Grand mal convulsion [None]
